FAERS Safety Report 9931121 (Version 2)
Quarter: 2014Q1

REPORT INFORMATION
  Report Type: Spontaneous
  Country: JP (occurrence: JP)
  Receive Date: 20140227
  Receipt Date: 20140326
  Transmission Date: 20141002
  Serious: Yes (Life-Threatening, Hospitalization, Other)
  Sender: FDA-Public Use
  Company Number: JP-ASTRAZENECA-2014SE14161

PATIENT
  Age: 69 Year
  Sex: Female

DRUGS (16)
  1. SEROQUEL [Suspect]
     Indication: DEPRESSIVE SYMPTOM
     Dosage: UNKNOWN DOSE DAILY
     Route: 048
     Dates: start: 201304, end: 201304
  2. SEROQUEL [Suspect]
     Indication: DEPRESSIVE SYMPTOM
     Route: 048
     Dates: start: 20130422, end: 20130422
  3. MYSLEE [Suspect]
     Indication: DEPRESSIVE SYMPTOM
     Route: 048
     Dates: start: 201304, end: 201304
  4. MYSLEE [Suspect]
     Indication: DEPRESSIVE SYMPTOM
     Route: 048
     Dates: start: 20130422, end: 20130422
  5. MYSLEE [Suspect]
     Indication: DEPRESSIVE SYMPTOM
     Route: 048
     Dates: start: 20130330
  6. BALDEKEN-R [Suspect]
     Route: 048
     Dates: start: 20130422, end: 20130422
  7. GASTER [Suspect]
     Route: 048
     Dates: start: 20130422, end: 20130422
  8. ATORVASTATIN [Suspect]
     Indication: HYPERLIPIDAEMIA
     Route: 048
     Dates: start: 20130422, end: 20130422
  9. CONIEL [Suspect]
     Indication: HYPERTENSION
     Route: 048
  10. CONIEL [Suspect]
     Indication: HYPERTENSION
     Route: 048
     Dates: start: 20130422, end: 20130422
  11. CYMBALTA [Suspect]
     Indication: DEPRESSIVE SYMPTOM
     Route: 048
     Dates: start: 20130330
  12. CYMBALTA [Suspect]
     Indication: DEPRESSIVE SYMPTOM
     Route: 048
     Dates: start: 20130422, end: 20130422
  13. SILVINOL [Suspect]
     Route: 048
     Dates: start: 20130422, end: 20130422
  14. ZYPREXA [Suspect]
     Indication: DEPRESSIVE SYMPTOM
     Route: 048
     Dates: start: 20130330
  15. ZYPREXA [Suspect]
     Indication: DEPRESSIVE SYMPTOM
     Route: 048
     Dates: start: 20130422, end: 20130422
  16. DEPAS [Concomitant]
     Route: 048
     Dates: start: 20130330

REACTIONS (3)
  - Intentional overdose [Recovered/Resolved]
  - Toxicity to various agents [Recovered/Resolved]
  - Off label use [Unknown]
